FAERS Safety Report 11461179 (Version 1)
Quarter: 2015Q3

REPORT INFORMATION
  Report Type: Spontaneous
  Country: US (occurrence: US)
  Receive Date: 20150831
  Receipt Date: 20150831
  Transmission Date: 20151125
  Serious: Yes (Other)
  Sender: FDA-Public Use
  Company Number: US-ELI_LILLY_AND_COMPANY-US201007000576

PATIENT
  Sex: Male

DRUGS (2)
  1. CYMBALTA [Suspect]
     Active Substance: DULOXETINE HYDROCHLORIDE
     Indication: DEPRESSION
     Dosage: 30 MG, UNK
     Dates: start: 20100629, end: 20100630
  2. LISINOPRIL. [Concomitant]
     Active Substance: LISINOPRIL

REACTIONS (14)
  - Hypertension [Recovered/Resolved]
  - Mydriasis [Recovering/Resolving]
  - Feeling abnormal [Unknown]
  - Palpitations [Recovered/Resolved]
  - Extrasystoles [Unknown]
  - Dysgeusia [Not Recovered/Not Resolved]
  - Oral mucosal discolouration [Unknown]
  - Hyperhidrosis [Not Recovered/Not Resolved]
  - Headache [Not Recovered/Not Resolved]
  - Asthenia [Unknown]
  - Heart rate increased [Not Recovered/Not Resolved]
  - Insomnia [Not Recovered/Not Resolved]
  - Dizziness [Unknown]
  - Decreased appetite [Not Recovered/Not Resolved]
